FAERS Safety Report 5943328-6 (Version None)
Quarter: 2008Q4

REPORT INFORMATION
  Report Type: 
  Country: None (occurrence: None)
  Receive Date: 20081106
  Receipt Date: 20081030
  Transmission Date: 20090506
  Serious: Yes (Hospitalization)
  Sender: FDA-Public Use
  Company Number: PHHY2008GB26329

PATIENT
  Age: 76 Year
  Sex: Female

DRUGS (4)
  1. STALEVO 100 [Suspect]
     Indication: PARKINSON'S DISEASE
     Dosage: UNK
     Route: 048
     Dates: start: 20070101, end: 20081001
  2. AMITRIPTYLINE HCL [Concomitant]
     Indication: PARKINSON'S DISEASE
     Dosage: 75 MG
     Route: 048
     Dates: start: 20060101
  3. OMEPRAZOLE [Concomitant]
     Indication: GASTROINTESTINAL PAIN
     Dosage: UNK
     Route: 048
     Dates: start: 20060101
  4. PRAMIPEXOLE DIHYDROCHLORIDE [Concomitant]
     Indication: PARKINSON'S DISEASE
     Dosage: UNK
     Route: 048
     Dates: start: 20060101

REACTIONS (1)
  - TOOTH EROSION [None]
